FAERS Safety Report 8508680-6 (Version None)
Quarter: 2012Q3

REPORT INFORMATION
  Report Type: 
  Country: None (occurrence: None)
  Receive Date: 20120713
  Receipt Date: 20120629
  Transmission Date: 20120928
  Serious: Yes (Other)
  Sender: FDA-Public Use
  Company Number: IT-MYLANLABS-2012S1006012

PATIENT
  Age: 64 Year
  Sex: Male

DRUGS (1)
  1. METFORMIN HYDROCHLORIDE [Suspect]
     Indication: DIABETES MELLITUS
     Dates: start: 20120314, end: 20120314

REACTIONS (3)
  - DERMATITIS [None]
  - ANGIOEDEMA [None]
  - URTICARIA [None]
